FAERS Safety Report 5865268-3 (Version None)
Quarter: 2008Q3

REPORT INFORMATION
  Report Type: 
  Country: None (occurrence: None)
  Receive Date: 20080829
  Receipt Date: 20080201
  Transmission Date: 20090109
  Serious: No
  Sender: FDA-Public Use
  Company Number: A0706878A

PATIENT
  Age: 61 Year
  Sex: Female

DRUGS (2)
  1. BECONASE [Suspect]
     Dosage: 2PUFF PER DAY
     Route: 045
     Dates: start: 19930101
  2. FOSAMAX [Concomitant]

REACTIONS (2)
  - BRONCHITIS [None]
  - UPPER RESPIRATORY TRACT INFECTION [None]
